FAERS Safety Report 4945108-7 (Version None)
Quarter: 2006Q1

REPORT INFORMATION
  Report Type: 
  Country: None (occurrence: None)
  Receive Date: 20060307
  Receipt Date: 20060223
  Transmission Date: 20060701
  Serious: Yes (Hospitalization)
  Sender: FDA-Public Use
  Company Number: 200610049BBE

PATIENT
  Age: 5 Year
  Sex: Female

DRUGS (5)
  1. GAMIMUNE N 10% [Suspect]
     Indication: ACUTE LYMPHOCYTIC LEUKAEMIA
     Dosage: SEE IMAGE
     Route: 042
     Dates: start: 20060217
  2. GAMIMUNE N 10% [Suspect]
  3. TYLENOL [Concomitant]
  4. ANTIBIOTICS [Concomitant]
  5. CHEMOTHERAPHY MEDICATIONS [Concomitant]

REACTIONS (4)
  - HAEMOGLOBIN DECREASED [None]
  - HAEMOLYSIS [None]
  - NAUSEA [None]
  - PYREXIA [None]
